FAERS Safety Report 16185412 (Version 8)
Quarter: 2019Q3

REPORT INFORMATION
  Report Type: Spontaneous
  Country: US (occurrence: US)
  Receive Date: 20190411
  Receipt Date: 20190830
  Transmission Date: 20191004
  Serious: Yes (Other)
  Sender: FDA-Public Use
  Company Number: US-PFIZER INC-2019152996

PATIENT
  Age: 24 Year
  Sex: Female
  Weight: 50 kg

DRUGS (4)
  1. LYRICA [Suspect]
     Active Substance: PREGABALIN
     Indication: FIBROMYALGIA
     Dosage: 75 MG, 1X/DAY (TO BE USED AT NIGHT WITH THE 75 MG DURING THE NIGHT)
     Route: 048
  2. LYRICA [Suspect]
     Active Substance: PREGABALIN
     Dosage: 50 MG, 1X/DAY(TO BE USED AT NIGHT WITH THE 50 MG DURING THE DAY)
     Route: 048
  3. LYRICA [Suspect]
     Active Substance: PREGABALIN
     Dosage: 75 MG, 2X/DAY
     Route: 048
  4. LYRICA [Suspect]
     Active Substance: PREGABALIN
     Dosage: 50 MG, 1X/DAY (TAKE IN THE MORNING)
     Route: 048

REACTIONS (12)
  - Insomnia [Unknown]
  - Vision blurred [Unknown]
  - Neuralgia [Unknown]
  - Migraine [Unknown]
  - Irritable bowel syndrome [Unknown]
  - Dysmenorrhoea [Unknown]
  - Blindness [Unknown]
  - Hyperaesthesia [Unknown]
  - Bone pain [Unknown]
  - Scoliosis [Unknown]
  - Obsessive-compulsive disorder [Unknown]
  - Anxiety [Unknown]
